FAERS Safety Report 8689252 (Version 4)
Quarter: 2013Q3

REPORT INFORMATION
  Report Type: Spontaneous
  Country: US (occurrence: US)
  Receive Date: 20120727
  Receipt Date: 20130717
  Transmission Date: 20140515
  Serious: Yes (Other)
  Sender: FDA-Public Use
  Company Number: US-ASTRAZENECA-2011SE75418

PATIENT
  Age: 55 Year
  Sex: Female
  Weight: 56.7 kg

DRUGS (2)
  1. SEROQUEL XR [Suspect]
     Indication: BIPOLAR DISORDER
     Route: 048
  2. LEVOTHYROXINE [Concomitant]

REACTIONS (5)
  - Suicidal ideation [Unknown]
  - Rheumatoid arthritis [Unknown]
  - Retching [Unknown]
  - Drug withdrawal syndrome [Unknown]
  - Drug dose omission [Unknown]
